FAERS Safety Report 24862802 (Version 1)
Quarter: 2025Q1

REPORT INFORMATION
  Report Type: Spontaneous
  Country: CA (occurrence: CA)
  Receive Date: 20250120
  Receipt Date: 20250120
  Transmission Date: 20250409
  Serious: Yes (Life-Threatening, Hospitalization)
  Sender: PFIZER
  Company Number: CA-PFIZER INC-202500010665

PATIENT
  Age: 54 Year
  Sex: Male
  Weight: 67 kg

DRUGS (2)
  1. CYTARABINE [Suspect]
     Active Substance: CYTARABINE
     Indication: Acute myeloid leukaemia
  2. IDARUBICIN HYDROCHLORIDE [Suspect]
     Active Substance: IDARUBICIN HYDROCHLORIDE
     Indication: Acute myeloid leukaemia

REACTIONS (1)
  - Febrile neutropenia [Recovered/Resolved]
